FAERS Safety Report 16037331 (Version 1)
Quarter: 2019Q1

REPORT INFORMATION
  Report Type: Spontaneous
  Country: FR (occurrence: FR)
  Receive Date: 20190305
  Receipt Date: 20190305
  Transmission Date: 20190418
  Serious: Yes (Life-Threatening, Hospitalization)
  Sender: FDA-Public Use
  Company Number: FR-MYLANLABS-2019M1020174

PATIENT
  Age: 54 Year
  Sex: Male

DRUGS (2)
  1. MIRTAZAPINE. [Suspect]
     Active Substance: MIRTAZAPINE
     Indication: PRODUCT USED FOR UNKNOWN INDICATION
     Route: 065
  2. CYAMEMAZINE [Suspect]
     Active Substance: CYAMEMAZINE
     Indication: PRODUCT USED FOR UNKNOWN INDICATION
     Route: 065

REACTIONS (8)
  - Coma [Unknown]
  - Blood lactic acid increased [Unknown]
  - Hypotension [Unknown]
  - Hyperkalaemia [Unknown]
  - Poisoning deliberate [Unknown]
  - Blood creatinine increased [Unknown]
  - Intentional overdose [Unknown]
  - Electrocardiogram QRS complex prolonged [Unknown]
